FAERS Safety Report 10494501 (Version 1)
Quarter: 2014Q4

REPORT INFORMATION
  Report Type: Spontaneous
  Country: US (occurrence: None)
  Receive Date: 20141002
  Receipt Date: 20141002
  Transmission Date: 20150528
  Serious: Yes (Hospitalization)
  Sender: FDA-Public Use
  Company Number: None

PATIENT
  Age: 65 Year
  Sex: Male
  Weight: 103.8 kg

DRUGS (22)
  1. DAPSONE. [Suspect]
     Active Substance: DAPSONE
     Indication: LUNG TRANSPLANT
     Dosage: 100 MG, EVERY DAY, PO
     Route: 048
     Dates: start: 20121226, end: 20140919
  2. ASPIRIN. [Concomitant]
     Active Substance: ASPIRIN
  3. DOCUSATE NA [Concomitant]
     Active Substance: DOCUSATE
  4. HYDRALAZINE HCL [Concomitant]
     Active Substance: HYDRALAZINE HYDROCHLORIDE
  5. MULTIVITAMIN/MINERALS CAP/TAB [Concomitant]
  6. OXYCODONE [Concomitant]
     Active Substance: OXYCODONE
  7. ALBUTEROL. [Concomitant]
     Active Substance: ALBUTEROL
  8. FUROSEMIDE. [Concomitant]
     Active Substance: FUROSEMIDE
  9. INSULIN GLARGINE [Concomitant]
     Active Substance: INSULIN GLARGINE
  10. CHOLECALCIFEROL (VIT. D3) [Concomitant]
  11. SODIUM POLYSTYRENE SULF [Concomitant]
  12. TACROLIMUS (PROGRAF) [Concomitant]
  13. FERROUS SULFATE [Concomitant]
     Active Substance: FERROUS SULFATE\FERROUS SULFATE, DRIED
  14. PRAVASTATIN NA [Concomitant]
  15. AZITHROMYCIN [Concomitant]
     Active Substance: AZITHROMYCIN ANHYDROUS
  16. MAGNESIUM OXIDE. [Concomitant]
     Active Substance: MAGNESIUM OXIDE
  17. PREDNISONE. [Concomitant]
     Active Substance: PREDNISONE
  18. RENAL MULTIVIT W [Concomitant]
  19. SILDENAFIL CITRATE. [Concomitant]
     Active Substance: SILDENAFIL CITRATE
  20. ALLOPURINOL. [Concomitant]
     Active Substance: ALLOPURINOL
  21. CYANOCOBALAMIN. [Concomitant]
     Active Substance: CYANOCOBALAMIN
  22. DILTIAZEM (INWOOD) [Concomitant]

REACTIONS (1)
  - Pancreatitis [None]

NARRATIVE: CASE EVENT DATE: 20140905
